FAERS Safety Report 6412827-5 (Version None)
Quarter: 2009Q4

REPORT INFORMATION
  Report Type: 
  Country: None (occurrence: None)
  Receive Date: 20091023
  Receipt Date: 20091013
  Transmission Date: 20100525
  Serious: Yes (Other)
  Sender: FDA-Public Use
  Company Number: FR-CELGENEUS-056-21880-09081473

PATIENT
  Sex: Male
  Weight: 67 kg

DRUGS (7)
  1. REVLIMID [Suspect]
     Route: 048
     Dates: start: 20090729, end: 20090818
  2. ARACYTINE [Suspect]
     Route: 051
     Dates: start: 20090729, end: 20090804
  3. DAUNORUBICIN HCL [Suspect]
     Route: 051
     Dates: start: 20090729, end: 20090731
  4. TIENAM [Concomitant]
     Route: 065
     Dates: start: 20090812
  5. VANCOMYCIN [Concomitant]
     Route: 065
     Dates: start: 20090801
  6. CANCIDAS [Concomitant]
     Route: 065
     Dates: start: 20090814
  7. INSULIN [Concomitant]
     Route: 051

REACTIONS (9)
  - CHALAZION [None]
  - CONSTIPATION [None]
  - CULTURE STOOL POSITIVE [None]
  - CYTOLYTIC HEPATITIS [None]
  - DIABETES MELLITUS INADEQUATE CONTROL [None]
  - ESCHERICHIA INFECTION [None]
  - KLEBSIELLA INFECTION [None]
  - OEDEMA PERIPHERAL [None]
  - PROTEUS INFECTION [None]
